FAERS Safety Report 7401613-5 (Version None)
Quarter: 2011Q2

REPORT INFORMATION
  Report Type: 
  Country: None (occurrence: None)
  Receive Date: 20110408
  Receipt Date: 20110331
  Transmission Date: 20111010
  Serious: No
  Sender: FDA-Public Use
  Company Number: US-BIOGENIDEC-2011BI012258

PATIENT
  Sex: Female

DRUGS (2)
  1. TYSABRI [Suspect]
     Indication: MULTIPLE SCLEROSIS
     Route: 042
     Dates: start: 20091228
  2. TYSABRI [Suspect]
     Route: 042
     Dates: start: 20070913, end: 20081202

REACTIONS (2)
  - MULTIPLE SCLEROSIS [None]
  - MEMORY IMPAIRMENT [None]
